FAERS Safety Report 20557506 (Version 7)
Quarter: 2022Q4

REPORT INFORMATION
  Report Type: Spontaneous
  Country: JP (occurrence: JP)
  Receive Date: 20220307
  Receipt Date: 20221212
  Transmission Date: 20230113
  Serious: Yes (Other)
  Sender: FDA-Public Use
  Company Number: JP-CHUGAI-2022006770AA

PATIENT
  Age: 24 Year
  Sex: Male
  Weight: 72 kg

DRUGS (1)
  1. HEMLIBRA [Suspect]
     Active Substance: EMICIZUMAB-KXWH
     Indication: Haemophilia A without inhibitors
     Dosage: 240 MILLIGRAM, ONCE/2WEEKS
     Route: 058
     Dates: start: 20200801

REACTIONS (3)
  - Haemarthrosis [Recovering/Resolving]
  - Activated partial thromboplastin time prolonged [Not Recovered/Not Resolved]
  - Synovitis [Not Recovered/Not Resolved]

NARRATIVE: CASE EVENT DATE: 20220224
